FAERS Safety Report 8542482-X (Version None)
Quarter: 2012Q3

REPORT INFORMATION
  Report Type: 
  Country: None (occurrence: None)
  Receive Date: 20120726
  Receipt Date: 20120214
  Transmission Date: 20120928
  Serious: Yes (Other)
  Sender: FDA-Public Use
  Company Number: US-ASTRAZENECA-2009UW18363

PATIENT
  Age: 57 Year
  Sex: Female

DRUGS (7)
  1. SEROQUEL [Suspect]
     Route: 048
  2. SEROQUEL [Suspect]
     Indication: BIPOLAR DISORDER
     Route: 048
  3. PROZAC [Concomitant]
  4. SEROQUEL [Suspect]
     Indication: INSOMNIA
     Route: 048
  5. SEROQUEL [Suspect]
     Indication: SLEEP DISORDER
     Route: 048
  6. SEROQUEL [Suspect]
     Route: 048
  7. SEROQUEL [Suspect]
     Route: 048

REACTIONS (15)
  - VIRAL INFECTION [None]
  - PYREXIA [None]
  - VOMITING [None]
  - OFF LABEL USE [None]
  - DRUG DOSE OMISSION [None]
  - INSOMNIA [None]
  - DISORIENTATION [None]
  - EATING DISORDER [None]
  - SYNCOPE [None]
  - CEREBROVASCULAR ACCIDENT [None]
  - FATIGUE [None]
  - HYPOKALAEMIA [None]
  - FEELING ABNORMAL [None]
  - NERVOUSNESS [None]
  - BIPOLAR I DISORDER [None]
